FAERS Safety Report 9861973 (Version 1)
Quarter: 2014Q1

REPORT INFORMATION
  Report Type: Spontaneous
  Country: US (occurrence: US)
  Receive Date: 20140203
  Receipt Date: 20140203
  Transmission Date: 20141002
  Serious: Yes (Hospitalization, Other)
  Sender: FDA-Public Use
  Company Number: US-JNJFOC-20140113030

PATIENT
  Sex: Female

DRUGS (3)
  1. ORTHO-NOVUM [Suspect]
     Indication: CONTRACEPTION
     Route: 048
     Dates: end: 2006
  2. BYETTA [Suspect]
     Indication: DIABETES MELLITUS
     Route: 065
  3. HUMALOG [Concomitant]
     Indication: DIABETES MELLITUS
     Dosage: 2U SOLUTION /PER DAY
     Route: 065

REACTIONS (3)
  - Diabetes mellitus [Not Recovered/Not Resolved]
  - Neoplasm [Recovered/Resolved]
  - Dyspepsia [Recovered/Resolved]
